FAERS Safety Report 7299702-1 (Version None)
Quarter: 2011Q1

REPORT INFORMATION
  Report Type: 
  Country: None (occurrence: None)
  Receive Date: 20110217
  Receipt Date: 20110125
  Transmission Date: 20110831
  Serious: No
  Sender: FDA-Public Use
  Company Number: US-B.I. PHARMACEUTICALS,INC./RIDGEFIELD-2011-BP-02398BP

PATIENT
  Age: 76 Year
  Sex: Female

DRUGS (11)
  1. TRAMADOL [Concomitant]
     Indication: ARTHRITIS
  2. GALAPERAMINE [Concomitant]
     Indication: AMNESIA
  3. SYNTHROID [Concomitant]
     Indication: HYPOTHYROIDISM
  4. METOPROLOL TARTRATE [Concomitant]
     Indication: HYPERTENSION
  5. PRADAXA [Suspect]
     Indication: ATRIAL FIBRILLATION
     Dosage: 300 MG
     Route: 048
     Dates: start: 20110106
  6. CYTOMEL [Concomitant]
     Indication: HYPOTHYROIDISM
  7. ADVAIR [Concomitant]
     Indication: ASTHMA
  8. NORVASC [Concomitant]
     Indication: HYPERTENSION
  9. SPIRIVA [Suspect]
  10. DIOVAN [Concomitant]
     Indication: HYPERTENSION
  11. HYDROCHLOROTHIAZIDE [Concomitant]
     Indication: HYPERTENSION

REACTIONS (5)
  - ABDOMINAL PAIN UPPER [None]
  - OEDEMA PERIPHERAL [None]
  - PAIN IN EXTREMITY [None]
  - CONFUSIONAL STATE [None]
  - DISTURBANCE IN ATTENTION [None]
